FAERS Safety Report 5194966-2 (Version None)
Quarter: 2006Q4

REPORT INFORMATION
  Report Type: 
  Country: None (occurrence: None)
  Receive Date: 20061227
  Receipt Date: 20061211
  Transmission Date: 20070319
  Serious: Yes (Death, Other)
  Sender: FDA-Public Use
  Company Number: A-NJ2006-13816

PATIENT
  Age: 21 Year
  Sex: Female
  Weight: 54.9 kg

DRUGS (3)
  1. TRACLEER [Suspect]
     Indication: PULMONARY HYPERTENSION
     Dosage: 125 MG, BID, ORAL
     Route: 048
     Dates: start: 20050301
  2. COUMADIN [Concomitant]
  3. FLOLAN [Concomitant]

REACTIONS (10)
  - ABORTION INDUCED [None]
  - CARDIAC DISORDER [None]
  - DECREASED ACTIVITY [None]
  - DISEASE PROGRESSION [None]
  - DRUG EXPOSURE DURING PREGNANCY [None]
  - DYSPNOEA [None]
  - NAUSEA [None]
  - PREGNANCY [None]
  - PULMONARY HYPERTENSION [None]
  - VOMITING [None]
